FAERS Safety Report 17302747 (Version 2)
Quarter: 2020Q1

REPORT INFORMATION
  Report Type: Spontaneous
  Country: DE (occurrence: DE)
  Receive Date: 20200122
  Receipt Date: 20200316
  Transmission Date: 20200409
  Serious: Yes (Other)
  Sender: FDA-Public Use
  Company Number: DE-MYLANLABS-2020M1006038

PATIENT
  Sex: Female
  Weight: 99 kg

DRUGS (1)
  1. VALSARTAN DURA 160 MG FILMTABLETTEN [Suspect]
     Active Substance: VALSARTAN
     Indication: PRODUCT USED FOR UNKNOWN INDICATION
     Dosage: 80 MILLIGRAM, BID (2 X DAILY) (ONCE IN MORNING AND ONCE IN EVENING)
     Route: 048
     Dates: end: 2019

REACTIONS (4)
  - Mental impairment [Unknown]
  - Quality of life decreased [Unknown]
  - Recalled product administered [Unknown]
  - Fear of disease [Unknown]
